FAERS Safety Report 9857771 (Version 1)
Quarter: 2014Q1

REPORT INFORMATION
  Report Type: Spontaneous
  Country: US (occurrence: US)
  Receive Date: 20140131
  Receipt Date: 20140131
  Transmission Date: 20141002
  Serious: No
  Sender: FDA-Public Use
  Company Number: US-BIOGENIDEC-2014BI008311

PATIENT
  Sex: Female

DRUGS (12)
  1. TECFIDERA [Suspect]
     Indication: MULTIPLE SCLEROSIS
     Route: 048
     Dates: start: 201312
  2. TECFIDERA [Suspect]
     Indication: MULTIPLE SCLEROSIS
     Route: 048
     Dates: start: 201312
  3. BENADRYL [Concomitant]
  4. ZANAFLEX [Concomitant]
  5. LISINOPRIL [Concomitant]
  6. CYMBALTA [Concomitant]
  7. TRAZODONE HCL [Concomitant]
  8. ZOFRAN [Concomitant]
  9. METOPROLOL SUCCINATE ER [Concomitant]
  10. KLONOPIN [Concomitant]
  11. NEURONTIN [Concomitant]
  12. BACLOFEN [Concomitant]

REACTIONS (2)
  - Musculoskeletal pain [Unknown]
  - Flushing [Unknown]
